FAERS Safety Report 11492376 (Version 1)
Quarter: 2015Q3

REPORT INFORMATION
  Report Type: Spontaneous
  Country: US (occurrence: None)
  Receive Date: 20150910
  Receipt Date: 20150910
  Transmission Date: 20151125
  Serious: Yes (Other)
  Sender: FDA-Public Use
  Company Number: None

PATIENT
  Age: 54 Year
  Sex: Male

DRUGS (1)
  1. ENBREL [Suspect]
     Active Substance: ETANERCEPT
     Indication: PSORIATIC ARTHROPATHY
     Dosage: DOSE FORM: INJECTABLE  FREQUENCY: INJ SQ WEEKLY
     Route: 058
     Dates: start: 20150802

REACTIONS (4)
  - Therapy cessation [None]
  - Injection site erythema [None]
  - Skin infection [None]
  - Injection site swelling [None]

NARRATIVE: CASE EVENT DATE: 20150810
